FAERS Safety Report 9305958 (Version 1)
Quarter: 2013Q1

REPORT INFORMATION
  Report Type: Spontaneous
  Country: US (occurrence: None)
  Receive Date: 20130225
  Receipt Date: 20130225
  Transmission Date: 20140127
  Serious: Yes (Other)
  Sender: FDA-Public Use
  Company Number: 2013006231

PATIENT
  Age: 69 Year
  Sex: Female

DRUGS (1)
  1. AFLIBERCEPT (AFLIBERCEPT) SOLUTION FOR INJECTION [Suspect]
     Indication: AGE-RELATED MACULAR DEGENERATION
     Dates: start: 20121212

REACTIONS (3)
  - Retinal haemorrhage [None]
  - Iris hyperpigmentation [None]
  - Vision blurred [None]
